FAERS Safety Report 14553200 (Version 1)
Quarter: 2018Q1

REPORT INFORMATION
  Report Type: Spontaneous
  Country: IT (occurrence: IT)
  Receive Date: 20180220
  Receipt Date: 20180220
  Transmission Date: 20180509
  Serious: Yes (Other)
  Sender: FDA-Public Use
  Company Number: IT-MYLANLABS-2018M1010622

PATIENT
  Age: 49 Year
  Sex: Male

DRUGS (2)
  1. INSTANYL [Suspect]
     Active Substance: FENTANYL
     Indication: BREAKTHROUGH PAIN
     Dosage: UNK
  2. BACLOFENE MYLAN GENERICS 10 MG COMPRESSE [Suspect]
     Active Substance: BACLOFEN
     Indication: MUSCLE CONTRACTURE
     Dosage: 10 MG, QD
     Route: 048
     Dates: start: 20170621, end: 20171227

REACTIONS (1)
  - Drop attacks [Recovered/Resolved]

NARRATIVE: CASE EVENT DATE: 20170703
